FAERS Safety Report 23964972 (Version 3)
Quarter: 2024Q3

REPORT INFORMATION
  Report Type: Report from Study
  Country: DE (occurrence: DE)
  Receive Date: 20240612
  Receipt Date: 20240730
  Transmission Date: 20241017
  Serious: Yes (Other)
  Sender: JOHNSON AND JOHNSON
  Company Number: DE-JNJFOC-20240612719

PATIENT
  Age: 41 Year
  Sex: Female

DRUGS (2)
  1. ESKETAMINE [Suspect]
     Active Substance: ESKETAMINE
     Indication: Depression
     Dosage: ^56 MG (2 DEVICES) 8 TOTAL DOSES^?28-MAR-2024, 02-APR-2024, 05-APR-2024, 09-APR-2024, 11-APR-2024, 1
     Dates: start: 20240325, end: 20240419
  2. ESKETAMINE [Suspect]
     Active Substance: ESKETAMINE
     Dosage: ^84 MG (3 DEVICES) 5 TOTAL DOSE^?02-MAY-2024, 08-MAY-2024, 13-MAY-2024.
     Dates: start: 20240423, end: 20240521

REACTIONS (8)
  - Alcohol poisoning [Recovered/Resolved]
  - Dizziness [Recovered/Resolved]
  - Hypoaesthesia oral [Recovered/Resolved]
  - Disturbance in attention [Recovered/Resolved]
  - Illusion [Recovered/Resolved]
  - Disorientation [Recovered/Resolved]
  - Fatigue [Recovered/Resolved]
  - Depressed mood [Recovered/Resolved]

NARRATIVE: CASE EVENT DATE: 20240325
